FAERS Safety Report 23782208 (Version 2)
Quarter: 2024Q3

REPORT INFORMATION
  Report Type: Spontaneous
  Country: RU (occurrence: None)
  Receive Date: 20240425
  Receipt Date: 20240702
  Transmission Date: 20241017
  Serious: Yes (Death, Hospitalization, Other)
  Sender: UNICHEM
  Company Number: RU-Unichem Pharmaceuticals (USA) Inc-UCM202404-000436

PATIENT
  Age: 33 Year
  Sex: Female

DRUGS (15)
  1. DIVALPROEX SODIUM [Suspect]
     Active Substance: DIVALPROEX SODIUM
     Indication: Status epilepticus
  2. DIVALPROEX SODIUM [Suspect]
     Active Substance: DIVALPROEX SODIUM
  3. DIVALPROEX SODIUM [Suspect]
     Active Substance: DIVALPROEX SODIUM
     Dosage: UNKNOWN (DOSE RESUMED)
  4. THIOPENTAL SODIUM [Concomitant]
     Active Substance: THIOPENTAL SODIUM
     Indication: Status epilepticus
     Dosage: UNKNOWN
  5. THIOPENTAL SODIUM [Concomitant]
     Active Substance: THIOPENTAL SODIUM
     Indication: Sedation
     Dosage: UNKNOWN
  6. BENZOBARBITAL [Concomitant]
     Active Substance: BENZOBARBITAL
     Indication: Status epilepticus
     Dosage: UNKNOWN
  7. CLONAZEPAM [Concomitant]
     Active Substance: CLONAZEPAM
     Indication: Status epilepticus
     Dosage: UNKNOWN
  8. PROPOFOL [Concomitant]
     Active Substance: PROPOFOL
     Indication: Sedation
     Dosage: UNKNOWN
  9. PROPOFOL [Concomitant]
     Active Substance: PROPOFOL
     Dosage: UNKNOWN
  10. Sodium oxybutyrate [Concomitant]
     Indication: Status epilepticus
     Dosage: UNKNOWN
  11. LEVETIRACETAM [Concomitant]
     Active Substance: LEVETIRACETAM
     Indication: Status epilepticus
     Dosage: UNKNOWN
  12. LACOSAMIDE [Concomitant]
     Active Substance: LACOSAMIDE
     Indication: Status epilepticus
     Dosage: UNKNOWN
  13. METHYLPREDNISOLONE [Concomitant]
     Active Substance: METHYLPREDNISOLONE
     Indication: Encephalitis allergic
     Dosage: UNKNOWN
  14. RITUXIMAB [Concomitant]
     Active Substance: RITUXIMAB
     Indication: Encephalitis allergic
     Dosage: UNKNOWN
  15. TOPIRAMATE [Concomitant]
     Active Substance: TOPIRAMATE
     Indication: Status epilepticus
     Dosage: UNKNOWN

REACTIONS (7)
  - Multiple organ dysfunction syndrome [Fatal]
  - Coma [Fatal]
  - Psychotic disorder [Unknown]
  - Hepatotoxicity [Fatal]
  - Depressed level of consciousness [Unknown]
  - Exposure during pregnancy [Unknown]
  - Drug ineffective [Unknown]
